FAERS Safety Report 23159308 (Version 1)
Quarter: 2023Q4

REPORT INFORMATION
  Report Type: Spontaneous
  Country: CN (occurrence: None)
  Receive Date: 20231108
  Receipt Date: 20231108
  Transmission Date: 20240110
  Serious: Yes (Other)
  Sender: FDA-Public Use
  Company Number: 2023A247656

PATIENT
  Sex: Female

DRUGS (4)
  1. DURVALUMAB [Suspect]
     Active Substance: DURVALUMAB
     Indication: Small cell lung cancer metastatic
     Dosage: 1000 MG EVERY 21 DAYS
     Dates: start: 20210926, end: 202112
  2. DURVALUMAB [Suspect]
     Active Substance: DURVALUMAB
     Indication: Metastases to lymph nodes
     Dosage: 1000 MG EVERY 21 DAYS
     Dates: start: 20210926, end: 202112
  3. DURVALUMAB [Suspect]
     Active Substance: DURVALUMAB
     Indication: Small cell lung cancer metastatic
     Dosage: 1000 MG EVERY 21 DAYS
     Dates: start: 20220511, end: 202212
  4. DURVALUMAB [Suspect]
     Active Substance: DURVALUMAB
     Indication: Metastases to lymph nodes
     Dosage: 1000 MG EVERY 21 DAYS
     Dates: start: 20220511, end: 202212

REACTIONS (1)
  - Tumour pseudoprogression [Recovered/Resolved]

NARRATIVE: CASE EVENT DATE: 20211227
